FAERS Safety Report 4599706-3 (Version None)
Quarter: 2005Q1

REPORT INFORMATION
  Report Type: 
  Country: None (occurrence: None)
  Receive Date: 20050307
  Receipt Date: 20050228
  Transmission Date: 20050727
  Serious: Yes (Hospitalization)
  Sender: FDA-Public Use
  Company Number: PHFR2005GB01055

PATIENT
  Age: 93 Year

DRUGS (3)
  1. RITALIN [Suspect]
     Indication: ATTENTION DEFICIT/HYPERACTIVITY DISORDER
     Dosage: 20MG/DAY
     Route: 048
     Dates: start: 19980101, end: 19990101
  2. CONCERTA [Suspect]
     Indication: ATTENTION DEFICIT/HYPERACTIVITY DISORDER
     Dosage: 36MG/DAY
     Route: 048
     Dates: start: 19990101, end: 20041103
  3. MELATONIN [Concomitant]
     Indication: ATTENTION DEFICIT/HYPERACTIVITY DISORDER
     Dosage: 3-6MG NOCTE
     Route: 048
     Dates: start: 20010101, end: 20040101

REACTIONS (2)
  - INFLAMMATION [None]
  - PERITONEAL NEOPLASM [None]
